FAERS Safety Report 7496150-6 (Version None)
Quarter: 2011Q2

REPORT INFORMATION
  Report Type: 
  Country: None (occurrence: None)
  Receive Date: 20110523
  Receipt Date: 20110509
  Transmission Date: 20111010
  Serious: Yes (Other)
  Sender: FDA-Public Use
  Company Number: PHHY2011JP33384

PATIENT
  Age: 87 Year
  Sex: Female
  Weight: 41.6 kg

DRUGS (7)
  1. TEGRETOL [Suspect]
     Indication: EPILEPSY
     Dosage: 600 MG, UNK
  2. BIOFERMIN [Concomitant]
     Dosage: 3 G, DAILY
  3. ONON [Concomitant]
     Dosage: 450 MG, DAILY
  4. MUCODYNE [Concomitant]
     Dosage: 1500 MG, DAILY
  5. ASPIRIN [Concomitant]
     Dosage: 100 MG, DAILY
  6. HOKUNALIN [Concomitant]
     Dosage: 2 MG, DAILY
  7. MAGNESIUM OXIDE [Concomitant]
     Dosage: 1.5 G, DAILY

REACTIONS (20)
  - CARDIAC FAILURE [None]
  - FALL [None]
  - MULTIPLE FRACTURES [None]
  - NASOPHARYNGITIS [None]
  - URINARY TRACT INFECTION [None]
  - DIARRHOEA [None]
  - PNEUMONIA [None]
  - BRADYCARDIA [None]
  - DEMENTIA [None]
  - BODY TEMPERATURE INCREASED [None]
  - THIRST [None]
  - EPILEPSY [None]
  - OEDEMA PERIPHERAL [None]
  - BLOOD PRESSURE DECREASED [None]
  - BRADYARRHYTHMIA [None]
  - HYPERHIDROSIS [None]
  - HEART RATE IRREGULAR [None]
  - URINE OUTPUT DECREASED [None]
  - LOSS OF CONSCIOUSNESS [None]
  - ASTHMA [None]
